FAERS Safety Report 19053363 (Version 2)
Quarter: 2021Q2

REPORT INFORMATION
  Report Type: Spontaneous
  Country: US (occurrence: US)
  Receive Date: 20210325
  Receipt Date: 20210413
  Transmission Date: 20210717
  Serious: No
  Sender: FDA-Public Use
  Company Number: US-BIOGEN-2021BI00981933

PATIENT
  Age: 58 Year
  Sex: Female
  Weight: 122.5 kg

DRUGS (12)
  1. TOPAMAX [Concomitant]
     Active Substance: TOPIRAMATE
     Route: 065
  2. FUROSEMIDE. [Concomitant]
     Active Substance: FUROSEMIDE
     Route: 065
  3. SIMVASTATIN. [Concomitant]
     Active Substance: SIMVASTATIN
     Route: 065
  4. SPIRINOLACTONE [Concomitant]
     Active Substance: SPIRONOLACTONE
     Route: 065
  5. VUMERITY [Suspect]
     Active Substance: DIROXIMEL FUMARATE
     Indication: MULTIPLE SCLEROSIS
     Dosage: STARTING DOSE
     Route: 048
     Dates: start: 20210209, end: 20210215
  6. HUMALOG [Concomitant]
     Active Substance: INSULIN LISPRO
     Route: 065
  7. LANTUS [Concomitant]
     Active Substance: INSULIN GLARGINE
     Route: 065
  8. BACLOFEN. [Concomitant]
     Active Substance: BACLOFEN
     Route: 065
  9. VUMERITY [Suspect]
     Active Substance: DIROXIMEL FUMARATE
     Dosage: MAINTENANCE DOSE
     Route: 048
     Dates: start: 20210216
  10. MELOXICAM. [Concomitant]
     Active Substance: MELOXICAM
     Route: 065
  11. VUMERITY [Suspect]
     Active Substance: DIROXIMEL FUMARATE
     Route: 065
     Dates: start: 20210128
  12. VUMERITY [Suspect]
     Active Substance: DIROXIMEL FUMARATE
     Route: 048
     Dates: start: 202101

REACTIONS (2)
  - Diarrhoea [Not Recovered/Not Resolved]
  - Incontinence [Unknown]

NARRATIVE: CASE EVENT DATE: 20210216
